FAERS Safety Report 8561143-4 (Version None)
Quarter: 2012Q3

REPORT INFORMATION
  Report Type: 
  Country: None (occurrence: None)
  Receive Date: 20120802
  Receipt Date: 20120720
  Transmission Date: 20120928
  Serious: No
  Sender: FDA-Public Use
  Company Number: US-ASTRAZENECA-2010SE60981

PATIENT
  Age: 79 Year
  Sex: Female

DRUGS (8)
  1. NEXIUM [Suspect]
     Route: 048
  2. BLOOD PRESSURE MEDICINE [Concomitant]
  3. PRAVASTATIN [Concomitant]
  4. LIPITOR [Concomitant]
  5. TRILIPIX [Concomitant]
  6. CLONIDINE [Suspect]
     Route: 065
  7. ESTROGEN [Concomitant]
  8. PRILOSEC [Suspect]
     Indication: GASTROOESOPHAGEAL REFLUX DISEASE
     Route: 048

REACTIONS (10)
  - SOMNOLENCE [None]
  - INTENTIONAL DRUG MISUSE [None]
  - WEIGHT DECREASED [None]
  - PAIN [None]
  - VOMITING [None]
  - DRUG INEFFECTIVE [None]
  - ABDOMINAL PAIN UPPER [None]
  - GASTROOESOPHAGEAL REFLUX DISEASE [None]
  - FEELING ABNORMAL [None]
  - NAUSEA [None]
